FAERS Safety Report 8556657-7 (Version None)
Quarter: 2012Q3

REPORT INFORMATION
  Report Type: 
  Country: None (occurrence: None)
  Receive Date: 20120801
  Receipt Date: 20120723
  Transmission Date: 20120928
  Serious: Yes (Hospitalization, Other)
  Sender: FDA-Public Use
  Company Number: US-BAYER-2012-026995

PATIENT
  Age: 18 Year
  Sex: Female
  Weight: 58.05 kg

DRUGS (7)
  1. LEVAQUIN [Concomitant]
     Dosage: 500 MG, UNK
     Dates: start: 20090120
  2. ANTIBIOTICS [Concomitant]
     Dosage: UNK
  3. YAZ [Suspect]
     Indication: MENSTRUATION IRREGULAR
     Dosage: UNK
     Dates: start: 20080801, end: 20090501
  4. TUSSIONEX [Concomitant]
     Dosage: UNK
     Dates: start: 20081218
  5. AZITHROMYCIN [Concomitant]
     Dosage: 500 MG, UNK
     Dates: start: 20081002
  6. DICYCLOMINE [Concomitant]
     Dosage: 20 MG, UNK
     Dates: start: 20090120
  7. NSAID'S [Concomitant]
     Dosage: UNK

REACTIONS (8)
  - CHOLELITHIASIS [None]
  - CHOLECYSTITIS ACUTE [None]
  - ANXIETY [None]
  - EMOTIONAL DISTRESS [None]
  - ABDOMINAL PAIN [None]
  - PAIN [None]
  - GENERAL PHYSICAL HEALTH DETERIORATION [None]
  - INJURY [None]
